FAERS Safety Report 9607584 (Version 2)
Quarter: 2015Q1

REPORT INFORMATION
  Report Type: Spontaneous
  Country: US (occurrence: None)
  Receive Date: 20131007
  Receipt Date: 20150105
  Transmission Date: 20150721
  Serious: Yes (Death)
  Sender: FDA-Public Use
  Company Number: 2013AP008504

PATIENT
  Age: 44 Year
  Sex: Female

DRUGS (8)
  1. LISINOPRIL TABLETS [Suspect]
     Active Substance: LISINOPRIL
     Route: 048
  2. TRAMADOL HYDROCHLORIDE TABLETS [Suspect]
     Active Substance: TRAMADOL HYDROCHLORIDE
     Route: 048
  3. GABAPENTIN. [Suspect]
     Active Substance: GABAPENTIN
     Route: 048
  4. METAXALONE (METAXALONE) [Suspect]
     Active Substance: METAXALONE
     Route: 048
  5. QUETIAPINE FUMARATE. [Suspect]
     Active Substance: QUETIAPINE FUMARATE
     Route: 048
  6. DULOXETINE [Suspect]
     Active Substance: DULOXETINE
     Route: 048
  7. CYCLOBENZAPRINE (CYCLOBENZAPRINE) [Suspect]
     Active Substance: CYCLOBENZAPRINE
     Route: 048
  8. ESZOPICLONE (ESZOPICLONE) [Suspect]
     Active Substance: ESZOPICLONE
     Route: 048

REACTIONS (1)
  - Completed suicide [None]
